FAERS Safety Report 8859380 (Version 2)
Quarter: 2012Q4

REPORT INFORMATION
  Report Type: 
  Country: US (occurrence: US)
  Receive Date: 20121024
  Receipt Date: 20121113
  Transmission Date: 20130627
  Serious: Yes (Hospitalization)
  Sender: FDA-Public Use
  Company Number: US-GILEAD-2012-0063432

PATIENT
  Age: 70 Year
  Sex: Female

DRUGS (3)
  1. LETAIRIS [Suspect]
     Indication: PULMONARY HYPERTENSION
     Dosage: 5 mg, QD
     Route: 048
     Dates: start: 20120517
  2. LETAIRIS [Suspect]
     Indication: COR PULMONALE CHRONIC
  3. REVATIO [Concomitant]

REACTIONS (2)
  - Dyspnoea [Unknown]
  - Dyspnoea [Not Recovered/Not Resolved]
